FAERS Safety Report 5302183-8 (Version None)
Quarter: 2007Q2

REPORT INFORMATION
  Report Type: 
  Country: None (occurrence: None)
  Receive Date: 20070412
  Receipt Date: 20070403
  Transmission Date: 20071010
  Serious: Yes (Other)
  Sender: FDA-Public Use
  Company Number: 2007-00775

PATIENT
  Age: 47 Year
  Sex: Male

DRUGS (12)
  1. NANDROLONE DECANOATE [Suspect]
     Indication: HIV TEST POSITIVE
     Dosage: 100 MG, 1 IN 2 WEEKS, INTRAMUSCULAR
     Route: 030
     Dates: start: 19990301, end: 20070123
  2. BLINDED THERAPY [Suspect]
     Indication: HIV TEST POSITIVE
     Dosage: 2 IN 1 DAY, ORAL
     Route: 048
     Dates: start: 20050721, end: 20070123
  3. ATOVAQUONE [Concomitant]
  4. FOLINIC ACID (FOLINIC ACID) [Concomitant]
  5. PYRIMETHAMINE TAB [Concomitant]
  6. SODIUM BICARBONATE IN PLASTIC CONTAINER [Concomitant]
  7. LOSARTAN POTASSIUM [Concomitant]
  8. ALENDRONIC ACID (ALENDRONIC ACID) [Concomitant]
  9. LOPERAMIDE HCL [Concomitant]
  10. TESTOSTERONE [Concomitant]
  11. CIALIS [Concomitant]
  12. TEMAZEPAM [Concomitant]

REACTIONS (3)
  - FATIGUE [None]
  - HEPATITIS C [None]
  - LIVER FUNCTION TEST ABNORMAL [None]
